FAERS Safety Report 24408570 (Version 1)
Quarter: 2024Q4

REPORT INFORMATION
  Report Type: Report from Study
  Country: US (occurrence: US)
  Receive Date: 20241007
  Receipt Date: 20241007
  Transmission Date: 20250115
  Serious: Yes (Other)
  Sender: TAIHO ONCOLOGY INC
  Company Number: US-TAIHOP-2024-009290

PATIENT
  Age: 79 Year
  Sex: Male
  Weight: 78.93 kg

DRUGS (7)
  1. INQOVI [Suspect]
     Active Substance: CEDAZURIDINE\DECITABINE
     Indication: Lung neoplasm malignant
     Dosage: DECITABINE 35 MG + 100 MG CEDAZURIDINE , CYCLE 2, DAYS 1-5 OF EVERY 28 DAYS CYCLE
     Route: 048
  2. FINASTERIDE [Concomitant]
     Active Substance: FINASTERIDE
     Indication: Product used for unknown indication
  3. PANTOPRAZOLE [Concomitant]
     Active Substance: PANTOPRAZOLE
     Indication: Product used for unknown indication
  4. TAMSULOSIN HYDROCHLORIDE [Concomitant]
     Active Substance: TAMSULOSIN HYDROCHLORIDE
     Indication: Product used for unknown indication
  5. MIRALAX [Concomitant]
     Active Substance: POLYETHYLENE GLYCOL 3350
     Indication: Product used for unknown indication
  6. SUCRALFATE [Concomitant]
     Active Substance: SUCRALFATE
     Indication: Product used for unknown indication
  7. URINARY HARMONY [Concomitant]
     Indication: Product used for unknown indication

REACTIONS (3)
  - Transfusion [Unknown]
  - Cardiac disorder [Unknown]
  - Product use in unapproved indication [Unknown]
